FAERS Safety Report 9888257 (Version 3)
Quarter: 2014Q1

REPORT INFORMATION
  Report Type: Spontaneous
  Country: IT (occurrence: IT)
  Receive Date: 20140211
  Receipt Date: 20140303
  Transmission Date: 20141002
  Serious: No
  Sender: FDA-Public Use
  Company Number: IT-SA-2014SA014210

PATIENT
  Sex: Female

DRUGS (4)
  1. DOCETAXEL [Suspect]
     Indication: BREAST CANCER
     Route: 065
     Dates: start: 20090119, end: 20090618
  2. TRASTUZUMAB [Suspect]
     Indication: BREAST CANCER
     Route: 065
     Dates: start: 20090119, end: 20090618
  3. TRASTUZUMAB [Suspect]
     Indication: BREAST CANCER
     Route: 065
     Dates: start: 20090709, end: 20120216
  4. HEPARIN SODIUM [Concomitant]
     Indication: JUGULAR VEIN THROMBOSIS

REACTIONS (4)
  - Muscle atrophy [Not Recovered/Not Resolved]
  - Brachial plexopathy [Unknown]
  - Carpal tunnel syndrome [Unknown]
  - Nervous system disorder [Unknown]
